FAERS Safety Report 14268306 (Version 1)
Quarter: 2017Q4

REPORT INFORMATION
  Report Type: Spontaneous
  Country: FI (occurrence: FI)
  Receive Date: 20171211
  Receipt Date: 20171211
  Transmission Date: 20180321
  Serious: Yes (Disabling)
  Sender: FDA-Public Use
  Company Number: FI-ASTRAZENECA-2017SF24178

PATIENT
  Age: 48 Year
  Sex: Male

DRUGS (6)
  1. METFORMIN [Concomitant]
     Active Substance: METFORMIN HYDROCHLORIDE
     Indication: DIABETES MELLITUS
     Dosage: 2,G,DAILY
     Route: 048
     Dates: start: 20171013
  2. PRIMASPAN [Concomitant]
     Active Substance: ASPIRIN
     Dosage: 100,MG,DAILY
     Route: 048
     Dates: start: 20171008
  3. MICARDIS [Concomitant]
     Active Substance: TELMISARTAN
     Indication: HYPERTENSION
     Dosage: 40,MG,DAILY
     Route: 048
     Dates: start: 20141022
  4. BISOPROLOL [Concomitant]
     Active Substance: BISOPROLOL
     Indication: HYPERTENSION
     Dosage: 5,MG,DAILY
     Route: 048
     Dates: start: 20130508, end: 20171123
  5. BRILIQUE [Suspect]
     Active Substance: TICAGRELOR
     Indication: ACUTE MYOCARDIAL INFARCTION
     Dosage: 180,MG,DAILY
     Route: 048
     Dates: start: 20171008
  6. ATORVASTATIN [Concomitant]
     Active Substance: ATORVASTATIN
     Indication: HYPERCHOLESTEROLAEMIA
     Dosage: 40,MG,DAILY
     Route: 048
     Dates: start: 20171008, end: 20171110

REACTIONS (7)
  - Joint warmth [Not Recovered/Not Resolved]
  - Synovial fluid crystal present [Not Recovered/Not Resolved]
  - Arthralgia [Not Recovered/Not Resolved]
  - Myalgia [Not Recovered/Not Resolved]
  - Joint stiffness [Not Recovered/Not Resolved]
  - Pyrexia [Not Recovered/Not Resolved]
  - Gait disturbance [Not Recovered/Not Resolved]

NARRATIVE: CASE EVENT DATE: 20171110
